FAERS Safety Report 13324287 (Version 5)
Quarter: 2017Q3

REPORT INFORMATION
  Report Type: Spontaneous
  Country: KR (occurrence: KR)
  Receive Date: 20170310
  Receipt Date: 20170801
  Transmission Date: 20171127
  Serious: Yes (Other)
  Sender: FDA-Public Use
  Company Number: KR-009507513-1703KOR004519

PATIENT
  Age: 34 Year
  Sex: Female
  Weight: 48.5 kg

DRUGS (57)
  1. EMEND (FOSAPREPITANT DIMEGLUMINE) [Suspect]
     Active Substance: FOSAPREPITANT DIMEGLUMINE
     Dosage: 150 MG, ONCE
     Route: 042
     Dates: start: 20161220, end: 20161220
  2. ENDOXAN [Concomitant]
     Active Substance: CYCLOPHOSPHAMIDE
     Dosage: 1095 MG, QD,CYCLE 2
     Route: 042
     Dates: start: 20161220, end: 20161220
  3. FAMVICS [Concomitant]
     Indication: PROPHYLAXIS
     Dosage: 250 MG, TID
     Route: 048
     Dates: start: 20161227, end: 20170102
  4. MACPERAN [Concomitant]
     Active Substance: METOCLOPRAMIDE HYDROCHLORIDE
     Dosage: 5 MG, TID
     Route: 048
     Dates: start: 20170308, end: 20170314
  5. GASMOTIN [Concomitant]
     Active Substance: MOSAPRIDE CITRATE
     Dosage: 5 MG, TID
     Route: 048
     Dates: start: 20170308, end: 20170314
  6. NEULASTA [Concomitant]
     Active Substance: PEGFILGRASTIM
     Dosage: 6 MG, QD
     Route: 058
     Dates: start: 20170308, end: 20170308
  7. KYONGBO CEFACLOR [Concomitant]
     Indication: PROPHYLAXIS
     Dosage: 250 MG, TID
     Route: 048
     Dates: start: 20161227, end: 20170102
  8. SOLONDO [Concomitant]
     Active Substance: PREDNISOLONE
     Dosage: 100 MG, QD
     Route: 048
     Dates: start: 20170215, end: 20170219
  9. TYLENOL EXTENDED RELIEF CAPLETS [Concomitant]
     Active Substance: ACETAMINOPHEN
     Dosage: 650 MG, TID
     Route: 048
     Dates: start: 20170308, end: 20170308
  10. NEULASTA [Concomitant]
     Active Substance: PEGFILGRASTIM
     Indication: PROPHYLAXIS
     Dosage: 6 MG, QD
     Route: 058
     Dates: start: 20161130, end: 20161130
  11. CRAVIT [Concomitant]
     Active Substance: LEVOFLOXACIN
     Indication: PROPHYLAXIS
     Dosage: 500 MG, QD
     Route: 048
     Dates: start: 20161212, end: 20161220
  12. CRAVIT [Concomitant]
     Active Substance: LEVOFLOXACIN
     Dosage: 500 MG, QD
     Route: 048
     Dates: start: 20161227, end: 20170102
  13. STILEN (MUGWORT) [Concomitant]
     Indication: PROPHYLAXIS AGAINST GASTROINTESTINAL ULCER
     Dosage: 60 MG, TID
     Route: 048
     Dates: start: 20161212, end: 20161220
  14. ENDOXAN [Concomitant]
     Active Substance: CYCLOPHOSPHAMIDE
     Indication: CHEMOTHERAPY
     Dosage: 1095 MG, QD, CYCLE 1
     Route: 042
     Dates: start: 20161130, end: 20161130
  15. SOLONDO [Concomitant]
     Active Substance: PREDNISOLONE
     Dosage: 100 MG, QD
     Route: 048
     Dates: start: 20161220, end: 20161224
  16. ZYLORIC [Concomitant]
     Active Substance: ALLOPURINOL
     Indication: PROPHYLAXIS
     Dosage: 100 MG, TID
     Route: 048
     Dates: start: 20161130, end: 20161204
  17. ZYLORIC [Concomitant]
     Active Substance: ALLOPURINOL
     Dosage: 100 MG, BID
     Route: 048
     Dates: start: 20170215, end: 20170221
  18. ZYLORIC [Concomitant]
     Active Substance: ALLOPURINOL
     Dosage: 100 MG, BID
     Route: 048
     Dates: start: 20170308, end: 20170314
  19. NEULASTA [Concomitant]
     Active Substance: PEGFILGRASTIM
     Dosage: 6 MG, QD
     Route: 058
     Dates: start: 20161220, end: 20161220
  20. VINCRISTINE PHARMACHEMIE [Concomitant]
     Active Substance: VINCRISTINE
     Indication: CHEMOTHERAPY
     Dosage: 2 MG, QD,CYCLE 2
     Route: 042
     Dates: start: 20161130, end: 20161130
  21. ALOXI [Concomitant]
     Active Substance: PALONOSETRON HYDROCHLORIDE
     Dosage: 0.25 MG, QD
     Route: 042
     Dates: start: 20170308, end: 20170308
  22. ZYLORIC [Concomitant]
     Active Substance: ALLOPURINOL
     Dosage: 100 MG, BID
     Route: 048
     Dates: start: 20161220, end: 20161226
  23. MACPERAN [Concomitant]
     Active Substance: METOCLOPRAMIDE HYDROCHLORIDE
     Indication: PROPHYLAXIS OF NAUSEA AND VOMITING
     Dosage: 5 MG, TID
     Route: 048
     Dates: start: 20161205, end: 20161209
  24. GASMOTIN [Concomitant]
     Active Substance: MOSAPRIDE CITRATE
     Dosage: 5 MG, TID
     Route: 048
     Dates: start: 20161220, end: 20161226
  25. PSEUDAFED [Concomitant]
     Indication: PROPHYLAXIS
     Dosage: 60 MG, TID
     Route: 048
     Dates: start: 20161221, end: 20170103
  26. NEULASTA [Concomitant]
     Active Substance: PEGFILGRASTIM
     Dosage: 6 MG, QD
     Route: 058
     Dates: start: 20170215, end: 20170215
  27. EMEND (FOSAPREPITANT DIMEGLUMINE) [Suspect]
     Active Substance: FOSAPREPITANT DIMEGLUMINE
     Dosage: 150 MG, ONCE
     Route: 042
     Dates: start: 20170215, end: 20170215
  28. ILDONG ADRIAMYCIN [Concomitant]
     Indication: CHEMOTHERAPY
     Dosage: 72 MG, QD, CYCLE1
     Route: 042
     Dates: start: 20161130, end: 20161130
  29. TYLENOL EXTENDED RELIEF CAPLETS [Concomitant]
     Active Substance: ACETAMINOPHEN
     Indication: PROPHYLAXIS
     Dosage: 650 MG, BID
     Route: 048
     Dates: start: 20161130, end: 20161130
  30. TYLENOL EXTENDED RELIEF CAPLETS [Concomitant]
     Active Substance: ACETAMINOPHEN
     Dosage: 650 MG, TID
     Route: 048
     Dates: start: 20170218, end: 20170224
  31. CELEBREX [Concomitant]
     Active Substance: CELECOXIB
     Indication: PAIN PROPHYLAXIS
     Dosage: 200 MG, QD
     Route: 048
     Dates: start: 20161212
  32. MACPERAN [Concomitant]
     Active Substance: METOCLOPRAMIDE HYDROCHLORIDE
     Dosage: 5 MG, TID
     Route: 048
     Dates: start: 20161220, end: 20161224
  33. GASMOTIN [Concomitant]
     Active Substance: MOSAPRIDE CITRATE
     Indication: PROPHYLAXIS AGAINST GASTROINTESTINAL ULCER
     Dosage: 5 MG, TID
     Route: 048
     Dates: start: 20161130, end: 20161204
  34. EMEND (FOSAPREPITANT DIMEGLUMINE) [Suspect]
     Active Substance: FOSAPREPITANT DIMEGLUMINE
     Dosage: 150 MG, ONCE
     Route: 042
     Dates: start: 20170308, end: 20170308
  35. ILDONG ADRIAMYCIN [Concomitant]
     Dosage: 73 MG,QD, CYCLE 2
     Route: 042
     Dates: start: 20161220, end: 20161220
  36. ILDONG ADRIAMYCIN [Concomitant]
     Dosage: 71.5 MG, QD, CYCLE 3
     Route: 042
     Dates: start: 20170215, end: 20170215
  37. ILDONG ADRIAMYCIN [Concomitant]
     Dosage: 72 MG, QD, CYCLE 4
     Route: 042
     Dates: start: 20170308, end: 20170308
  38. ENDOXAN [Concomitant]
     Active Substance: CYCLOPHOSPHAMIDE
     Dosage: 1080 MG, QD, CYCLE 4
     Route: 042
     Dates: start: 20170308, end: 20170308
  39. VINCRISTINE PHARMACHEMIE [Concomitant]
     Active Substance: VINCRISTINE
     Dosage: 2 MG, QD, CYCLE 2
     Route: 042
     Dates: start: 20161220, end: 20161220
  40. VINCRISTINE PHARMACHEMIE [Concomitant]
     Active Substance: VINCRISTINE
     Dosage: 2 MG,QD, CYCLE 3
     Route: 042
     Dates: start: 20170215, end: 20170215
  41. SOLONDO [Concomitant]
     Active Substance: PREDNISOLONE
     Dosage: 100 MG, QD
     Route: 048
     Dates: start: 20170308, end: 20170312
  42. ALOXI [Concomitant]
     Active Substance: PALONOSETRON HYDROCHLORIDE
     Indication: ANTIEMETIC SUPPORTIVE CARE
     Dosage: 0.25 MG, QD
     Route: 042
     Dates: start: 20161220, end: 20161220
  43. ALOXI [Concomitant]
     Active Substance: PALONOSETRON HYDROCHLORIDE
     Dosage: 0.25 MG, QD
     Route: 042
     Dates: start: 20170215, end: 20170215
  44. ZYLORIC [Concomitant]
     Active Substance: ALLOPURINOL
     Dosage: 100 MG, BID
     Route: 048
     Dates: start: 20170308, end: 20170314
  45. XYZAL [Concomitant]
     Active Substance: LEVOCETIRIZINE DIHYDROCHLORIDE
     Indication: PROPHYLAXIS
     Dosage: 5 MG, QD
     Route: 048
     Dates: start: 20161220, end: 20170101
  46. PARAMACET [Concomitant]
     Active Substance: ACETAMINOPHEN\TRAMADOL
     Indication: PAIN PROPHYLAXIS
     Dosage: 1 TABLET, TID
     Route: 048
     Dates: start: 20161212
  47. ENDOXAN [Concomitant]
     Active Substance: CYCLOPHOSPHAMIDE
     Dosage: 1072.5 MG, QD, CYCLE 3
     Route: 042
     Dates: start: 20170215, end: 20170215
  48. VINCRISTINE PHARMACHEMIE [Concomitant]
     Active Substance: VINCRISTINE
     Dosage: 2 MG, QD, CYCLE 4
     Route: 042
     Dates: start: 20170308, end: 20170308
  49. SOLONDO [Concomitant]
     Active Substance: PREDNISOLONE
     Indication: ANTIEMETIC SUPPORTIVE CARE
     Dosage: 100 MG, QD
     Route: 048
     Dates: start: 20161130, end: 20161130
  50. ZYLORIC [Concomitant]
     Active Substance: ALLOPURINOL
     Dosage: 100 MG, QD
     Route: 048
     Dates: start: 20161205, end: 20161214
  51. MACPERAN [Concomitant]
     Active Substance: METOCLOPRAMIDE HYDROCHLORIDE
     Dosage: 5 MG, TID
     Route: 048
     Dates: start: 20170215, end: 20170219
  52. EMEND (FOSAPREPITANT DIMEGLUMINE) [Suspect]
     Active Substance: FOSAPREPITANT DIMEGLUMINE
     Indication: PROPHYLAXIS OF NAUSEA AND VOMITING
     Dosage: 150 MG, ONCE
     Route: 042
     Dates: start: 20161130, end: 20161130
  53. TYLENOL EXTENDED RELIEF CAPLETS [Concomitant]
     Active Substance: ACETAMINOPHEN
     Dosage: 1300 MG, TID
     Route: 048
     Dates: start: 20161227, end: 20170102
  54. TYLENOL EXTENDED RELIEF CAPLETS [Concomitant]
     Active Substance: ACETAMINOPHEN
     Dosage: 1300 MG, TID
     Route: 048
     Dates: start: 20170215, end: 20170217
  55. DEXILANT [Concomitant]
     Active Substance: DEXLANSOPRAZOLE
     Indication: PROPHYLAXIS AGAINST GASTROINTESTINAL ULCER
     Dosage: 60 MG, QD
     Route: 048
     Dates: start: 20161220
  56. XYZAL [Concomitant]
     Active Substance: LEVOCETIRIZINE DIHYDROCHLORIDE
     Dosage: 5 MG, QD
     Route: 048
     Dates: start: 20170215, end: 20170307
  57. GASMOTIN [Concomitant]
     Active Substance: MOSAPRIDE CITRATE
     Dosage: 5 MG, TID
     Route: 048
     Dates: start: 20170215, end: 20170221

REACTIONS (1)
  - Eczema herpeticum [Recovering/Resolving]

NARRATIVE: CASE EVENT DATE: 20170103
